FAERS Safety Report 9146445 (Version 4)
Quarter: 2013Q2

REPORT INFORMATION
  Report Type: Spontaneous
  Country: HR (occurrence: HR)
  Receive Date: 20130307
  Receipt Date: 20130410
  Transmission Date: 20140414
  Serious: Yes (Death, Life-Threatening, Hospitalization, Disabling, Other)
  Sender: FDA-Public Use
  Company Number: PHHY2013HR021732

PATIENT
  Age: 60 Year
  Sex: Male
  Weight: 70 kg

DRUGS (9)
  1. EDICIN [Suspect]
     Indication: CHOLECYSTITIS ACUTE
     Dosage: 1 G, BID
     Route: 042
     Dates: start: 20130214, end: 20130223
  2. NEBIVOLOL [Concomitant]
  3. NORMABEL [Concomitant]
     Indication: ANXIETY
     Dosage: 5 MG, QD
     Route: 048
     Dates: start: 20130207, end: 20130223
  4. FURSEMIDE [Concomitant]
     Indication: CARDIAC FAILURE
     Dosage: 0.5 MG, QD
     Route: 048
     Dates: start: 20130207, end: 20130223
  5. PRILEN//RAMIPRIL [Concomitant]
     Indication: CARDIAC FAILURE
     Dosage: 1 DF, QD
     Route: 048
     Dates: start: 20130207, end: 20130223
  6. KALINOR                            /01478101/ [Concomitant]
     Route: 048
     Dates: start: 20130207, end: 20130223
  7. RANIX [Concomitant]
     Indication: GASTRITIS
     Dosage: 2 DF, QD
     Route: 048
     Dates: start: 20130207, end: 20130223
  8. FRAGMIN [Concomitant]
     Dosage: 1 DF, QD
     Route: 058
     Dates: start: 20130214, end: 20130223
  9. ULTRABIOTIQUE [Concomitant]
     Dosage: 2 DF, QD
     Route: 048
     Dates: start: 20130222, end: 20130223

REACTIONS (2)
  - Toxic epidermal necrolysis [Fatal]
  - Urticaria [Fatal]
